FAERS Safety Report 12455842 (Version 3)
Quarter: 2020Q3

REPORT INFORMATION
  Report Type: Spontaneous
  Country: FI (occurrence: FI)
  Receive Date: 20160610
  Receipt Date: 20200722
  Transmission Date: 20201102
  Serious: Yes (Other)
  Sender: FDA-Public Use
  Company Number: FI-ROCHE-1770835

PATIENT
  Age: 25 Year
  Sex: Female

DRUGS (17)
  1. FOLIC ACID. [Concomitant]
     Active Substance: FOLIC ACID
     Dosage: 4?12 HOURS AFTER TREXAN
  2. ROACTEMRA [Suspect]
     Active Substance: TOCILIZUMAB
     Indication: JUVENILE IDIOPATHIC ARTHRITIS
     Dosage: DOSE: 8MG/KG
     Route: 042
     Dates: start: 20110916
  3. ROACTEMRA [Suspect]
     Active Substance: TOCILIZUMAB
     Dosage: DOSE: 8MG/KG
     Route: 042
     Dates: start: 20151120, end: 20151120
  4. OXIKLORIN [Concomitant]
     Active Substance: HYDROXYCHLOROQUINE SULFATE
     Indication: JUVENILE IDIOPATHIC ARTHRITIS
     Route: 048
  5. ROACTEMRA [Suspect]
     Active Substance: TOCILIZUMAB
     Dosage: DOSE: 8MG/KG
     Route: 042
     Dates: start: 20151029, end: 20151029
  6. TRIPTYL [Concomitant]
     Active Substance: AMITRIPTYLINE HYDROCHLORIDE
     Dosage: 25 MG IN THE MORNING AND 10 MG IN THE EVENING
  7. ROACTEMRA [Suspect]
     Active Substance: TOCILIZUMAB
     Dosage: DOSE: 8MG/KG
     Route: 042
     Dates: start: 20150930, end: 20150930
  8. ACLOVIR [Concomitant]
  9. MOTIFENE [Concomitant]
     Active Substance: DICLOFENAC SODIUM
     Dosage: MOTIFENE DUAL
  10. SALAZOPYRINE EN [Concomitant]
     Active Substance: SULFASALAZINE
     Route: 048
  11. ROACTEMRA [Suspect]
     Active Substance: TOCILIZUMAB
     Dosage: DOSE: 8MG/KG
     Route: 042
     Dates: start: 20150903, end: 20150903
  12. SOMAC [Concomitant]
     Active Substance: PANTOPRAZOLE SODIUM
  13. GOLIMUMAB [Concomitant]
     Active Substance: GOLIMUMAB
     Indication: JUVENILE IDIOPATHIC ARTHRITIS
  14. TOCILIZUMAB. [Suspect]
     Active Substance: TOCILIZUMAB
     Indication: JUVENILE IDIOPATHIC ARTHRITIS
     Route: 065
  15. TREXAN (FINLAND) [Concomitant]
     Active Substance: METHOTREXATE
     Indication: JUVENILE IDIOPATHIC ARTHRITIS
  16. KALCIPOS?D [Concomitant]
     Active Substance: CALCIUM CARBONATE\CHOLECALCIFEROL
     Dosage: 500 MG/400 IU CALCIUM D?VITAMIN
  17. PANACOD [Concomitant]
     Active Substance: ACETAMINOPHEN\CODEINE PHOSPHATE
     Dosage: DOSE: 500 /30 MG

REACTIONS (3)
  - Demyelination [Recovered/Resolved]
  - CSF oligoclonal band [Recovered/Resolved]
  - Hypoaesthesia [Recovered/Resolved]

NARRATIVE: CASE EVENT DATE: 20151126
